FAERS Safety Report 8334347-3 (Version None)
Quarter: 2012Q2

REPORT INFORMATION
  Report Type: 
  Country: None (occurrence: None)
  Receive Date: 20120503
  Receipt Date: 20120427
  Transmission Date: 20120825
  Serious: Yes (Other)
  Sender: FDA-Public Use
  Company Number: PHHY2012IN036410

PATIENT
  Age: 35 Year
  Sex: Male

DRUGS (4)
  1. STAVUDINE [Concomitant]
     Indication: HIV INFECTION
  2. LAMIVUDINE [Concomitant]
     Indication: HIV INFECTION
  3. NEVIRAPINE [Concomitant]
     Indication: HIV INFECTION
  4. COTRIM [Suspect]
     Indication: PROPHYLAXIS

REACTIONS (2)
  - VISUAL IMPAIRMENT [None]
  - MYOPIA [None]
